FAERS Safety Report 24395110 (Version 2)
Quarter: 2024Q4

REPORT INFORMATION
  Report Type: Spontaneous
  Country: US (occurrence: US)
  Receive Date: 20241004
  Receipt Date: 20241017
  Transmission Date: 20250115
  Serious: Yes (Hospitalization)
  Sender: AUROBINDO
  Company Number: US-AUROBINDO-AUR-APL-2024-046515

PATIENT
  Age: 64 Year
  Sex: Male

DRUGS (20)
  1. ACYCLOVIR [Interacting]
     Active Substance: ACYCLOVIR
     Indication: Iron deficiency anaemia
     Dosage: 200 MILLIGRAM, DAILY
     Route: 065
  2. BUPROPION [Suspect]
     Active Substance: BUPROPION
     Indication: Tobacco use disorder
     Dosage: 300 MILLIGRAM, DAILY
     Route: 065
  3. FERROUS SULFATE [Interacting]
     Active Substance: FERROUS SULFATE
     Indication: Iron deficiency anaemia
     Dosage: 324 MILLIGRAM, DAILY
     Route: 065
  4. FUROSEMIDE [Interacting]
     Active Substance: FUROSEMIDE
     Indication: Hepatic cirrhosis
     Dosage: 20 MILLIGRAM, DAILY
     Route: 065
  5. FUROSEMIDE [Interacting]
     Active Substance: FUROSEMIDE
     Indication: Hypertension
  6. GABAPENTIN [Interacting]
     Active Substance: GABAPENTIN
     Indication: Chronic hepatitis C
     Dosage: 600 MILLIGRAM, TWO TIMES A DAY
     Route: 065
  7. OMEPRAZOLE [Suspect]
     Active Substance: OMEPRAZOLE
     Indication: Gastrooesophageal reflux disease
     Dosage: 20 MILLIGRAM (ADMINISTERED 12 HOURS BEFORE SOF/VEL; FASTED PATIENTS)
     Route: 065
  8. OMEPRAZOLE [Suspect]
     Active Substance: OMEPRAZOLE
     Dosage: 20 MILLIGRAM (ADMINISTERED 2 HOURS AND 4 HOURS BEFORE SOF/VEL WITH FOOD)
     Route: 065
  9. OMEPRAZOLE [Suspect]
     Active Substance: OMEPRAZOLE
     Dosage: 40 MILLIGRAM (ADMINISTERED 4 HOURS AFTER SOF/VEL WITH FOOD)
     Route: 065
  10. PANTOPRAZOLE SODIUM [Interacting]
     Active Substance: PANTOPRAZOLE SODIUM
     Indication: Gastrooesophageal reflux disease
     Dosage: 40 MILLIGRAM, TWO TIMES A DAY
     Route: 048
  11. PANTOPRAZOLE SODIUM [Interacting]
     Active Substance: PANTOPRAZOLE SODIUM
     Dosage: 40 MILLIGRAM, ONCE A DAY
     Route: 048
  12. POTASSIUM CHLORIDE [Interacting]
     Active Substance: POTASSIUM CHLORIDE
     Indication: Tobacco use disorder
     Dosage: 10 MILLIEQUIVALENT, DAILY
     Route: 065
  13. SILDENAFIL [Interacting]
     Active Substance: SILDENAFIL
     Indication: Erectile dysfunction
     Dosage: 100 MILLIGRAM ONCE WEEKLY AS NEEDED
     Route: 065
  14. TESTOSTERONE [Interacting]
     Active Substance: TESTOSTERONE
     Indication: Erectile dysfunction
     Dosage: 200 MILLIGRAM PER MILLILETER EVERY 2 WEEKS
     Route: 030
  15. ALBUTEROL [Interacting]
     Active Substance: ALBUTEROL
     Indication: Chronic hepatitis C
     Dosage: UNK
     Route: 065
  16. BUPRENORPHINE\NALOXONE [Interacting]
     Active Substance: BUPRENORPHINE\NALOXONE
     Indication: Drug use disorder
     Dosage: 8MG/2MG TWICE DAILY
     Route: 060
  17. SOFOSBUVIR AND VELPATASVIR [Interacting]
     Active Substance: SOFOSBUVIR\VELPATASVIR
     Indication: Chronic hepatitis C
     Dosage: 400MG/100MG, ONCE A DAY
     Route: 065
  18. CHOLECALCIFEROL [Interacting]
     Active Substance: CHOLECALCIFEROL
     Indication: Vitamin D deficiency
     Dosage: UNK UNK, DAILY (200 UNITS)
     Route: 065
  19. ALBUTEROL SULFATE\IPRATROPIUM BROMIDE [Interacting]
     Active Substance: ALBUTEROL SULFATE\IPRATROPIUM BROMIDE
     Indication: Chronic hepatitis C
     Dosage: UNK
     Route: 065
  20. DOCUSATE [Interacting]
     Active Substance: DOCUSATE
     Indication: Gastrooesophageal reflux disease
     Dosage: 240 MILLIGRAM, DAILY
     Route: 065

REACTIONS (3)
  - Mental status changes [Unknown]
  - Drug interaction [Unknown]
  - Drug ineffective [Unknown]
